FAERS Safety Report 7729187-X (Version None)
Quarter: 2011Q3

REPORT INFORMATION
  Report Type: 
  Country: None (occurrence: None)
  Receive Date: 20110906
  Receipt Date: 20110829
  Transmission Date: 20111222
  Serious: Yes (Other)
  Sender: FDA-Public Use
  Company Number: US-JNJFOC-20110604429

PATIENT
  Age: 75 Year
  Sex: Female
  Weight: 74.84 kg

DRUGS (8)
  1. ZYRTEC [Suspect]
     Indication: SEASONAL ALLERGY
     Route: 048
     Dates: start: 20100901
  2. FEXOFENADINE [Concomitant]
     Indication: MULTIPLE ALLERGIES
     Route: 065
  3. TOPROL-XL [Concomitant]
     Indication: HYPERTENSION
     Route: 065
  4. BENICAR [Concomitant]
     Indication: HYPERTENSION
     Route: 065
     Dates: start: 20110401
  5. FLUTICASONE PROPIONATE [Concomitant]
     Indication: MULTIPLE ALLERGIES
     Route: 045
  6. DILTIAZEM [Concomitant]
     Indication: HYPERTENSION
     Route: 065
  7. ZYRTEC [Suspect]
     Route: 048
  8. PLAVIX [Concomitant]
     Indication: ANTICOAGULANT THERAPY
     Route: 065

REACTIONS (2)
  - HALLUCINATION [None]
  - SLEEP TERROR [None]
